FAERS Safety Report 10686438 (Version 1)
Quarter: 2014Q4

REPORT INFORMATION
  Report Type: Spontaneous
  Country: SI (occurrence: SI)
  Receive Date: 20141231
  Receipt Date: 20141231
  Transmission Date: 20150529
  Serious: Yes (Hospitalization)
  Sender: FDA-Public Use
  Company Number: SI-GE HEALTHCARE MEDICAL DIAGNOSTICS-VISP-PR-1412L-0559

PATIENT
  Sex: Male
  Weight: 55 kg

DRUGS (9)
  1. VISIPAQUE [Suspect]
     Active Substance: IODIXANOL
     Indication: DIAGNOSTIC PROCEDURE
     Route: 042
     Dates: start: 20140213, end: 20140213
  2. ALLOPURINOL. [Concomitant]
     Active Substance: ALLOPURINOL
  3. PANTOPRAZOLE [Concomitant]
     Active Substance: PANTOPRAZOLE SODIUM
  4. AMLODIPINE [Concomitant]
     Active Substance: AMLODIPINE BESYLATE
  5. ATORVASTATINE [Concomitant]
     Active Substance: ATORVASTATIN
  6. BISOPROLOL [Concomitant]
     Active Substance: BISOPROLOL
  7. ACETYLSALICYLIC ACID [Concomitant]
     Active Substance: ASPIRIN
  8. VISIPAQUE [Suspect]
     Active Substance: IODIXANOL
     Indication: CORONARY ARTERY DISEASE
     Route: 042
     Dates: start: 20131203, end: 20131203
  9. VISIPAQUE [Suspect]
     Active Substance: IODIXANOL
     Route: 042
     Dates: start: 20140225, end: 20140225

REACTIONS (1)
  - Nephropathy toxic [Recovering/Resolving]
